FAERS Safety Report 5793220-5 (Version None)
Quarter: 2008Q2

REPORT INFORMATION
  Report Type: 
  Country: None (occurrence: None)
  Receive Date: 20080627
  Receipt Date: 20080623
  Transmission Date: 20081010
  Serious: Yes (Other)
  Sender: FDA-Public Use
  Company Number: US-WYE-H04686208

PATIENT
  Sex: Female

DRUGS (1)
  1. ROBITUSSIN COUGH [Suspect]
     Dosage: TWENTY COUGHGELS
     Route: 048

REACTIONS (2)
  - DRUG DEPENDENCE [None]
  - INTENTIONAL OVERDOSE [None]
